FAERS Safety Report 5675442-7 (Version None)
Quarter: 2008Q2

REPORT INFORMATION
  Report Type: 
  Country: None (occurrence: None)
  Receive Date: 20080311
  Receipt Date: 20070215
  Transmission Date: 20081010
  Serious: Yes (Other)
  Sender: FDA-Public Use
  Company Number: PHEH2007US02068

PATIENT
  Age: 13 Year
  Sex: Female
  Weight: 54.4 kg

DRUGS (1)
  1. TRILEPTAL [Suspect]
     Indication: AFFECTIVE DISORDER
     Dosage: 1 TABLET QAM, 2 TABLETS QPM
     Dates: start: 20061222

REACTIONS (1)
  - WEIGHT INCREASED [None]
